FAERS Safety Report 9100404 (Version 1)
Quarter: 2013Q1

REPORT INFORMATION
  Report Type: Spontaneous
  Country: CO (occurrence: CO)
  Receive Date: 20130215
  Receipt Date: 20130215
  Transmission Date: 20140127
  Serious: Yes (Hospitalization)
  Sender: FDA-Public Use
  Company Number: CO-ROCHE-1191610

PATIENT
  Age: 45 Year
  Sex: Female

DRUGS (7)
  1. XOLAIR [Suspect]
     Indication: ASTHMA
     Route: 058
     Dates: start: 20091128, end: 201208
  2. XOLAIR [Suspect]
     Route: 058
     Dates: start: 201212, end: 20130111
  3. BUDESONIDE [Concomitant]
  4. FORMOTEROL [Concomitant]
  5. DESLORATADINE [Concomitant]
  6. MOMETASONE FUROATE [Concomitant]
  7. LANSOPRAZOLE [Concomitant]

REACTIONS (2)
  - Respiratory distress [Recovering/Resolving]
  - Asthmatic crisis [Recovering/Resolving]
